FAERS Safety Report 6176719-1 (Version None)
Quarter: 2009Q2

REPORT INFORMATION
  Report Type: 
  Country: None (occurrence: None)
  Receive Date: 20090501
  Receipt Date: 20090427
  Transmission Date: 20091009
  Serious: Yes (Other)
  Sender: FDA-Public Use
  Company Number: BE-WYE-G03586109

PATIENT
  Sex: Female

DRUGS (2)
  1. RAPAMUNE [Suspect]
  2. PROGRAF [Interacting]

REACTIONS (2)
  - DRUG INTERACTION [None]
  - DRUG LEVEL DECREASED [None]
